FAERS Safety Report 12598409 (Version 12)
Quarter: 2019Q2

REPORT INFORMATION
  Report Type: Spontaneous
  Country: CA (occurrence: CA)
  Receive Date: 20160726
  Receipt Date: 20190624
  Transmission Date: 20190711
  Serious: Yes (Disabling, Other)
  Sender: FDA-Public Use
  Company Number: CA-PFIZER INC-2015389516

PATIENT
  Age: 46 Year
  Sex: Female

DRUGS (42)
  1. METHOTREXATE SODIUM. [Suspect]
     Active Substance: METHOTREXATE SODIUM
     Dosage: UNK
     Route: 048
  2. METHOTREXATE SODIUM. [Suspect]
     Active Substance: METHOTREXATE SODIUM
     Dosage: 25 MILLIGRAM, QWK
     Route: 058
  3. PREDNISONE. [Suspect]
     Active Substance: PREDNISONE
     Indication: RHEUMATOID ARTHRITIS
     Dosage: 25 MILLIGRAM, QD
     Route: 048
  4. PREDNISONE. [Suspect]
     Active Substance: PREDNISONE
     Dosage: 50 MILLIGRAM, UNK
     Route: 065
  5. XELJANZ [Concomitant]
     Active Substance: TOFACITINIB CITRATE
     Indication: RHEUMATOID ARTHRITIS
     Dosage: 5 MG, 2X/DAY
     Route: 048
     Dates: start: 20151126
  6. METHOTREXATE SODIUM. [Suspect]
     Active Substance: METHOTREXATE SODIUM
     Dosage: UNK
     Route: 048
  7. METHOTREXATE SODIUM. [Suspect]
     Active Substance: METHOTREXATE SODIUM
     Dosage: 25 MILLIGRAM, QWK
     Route: 048
  8. INDOMETHACIN [INDOMETACIN] [Suspect]
     Active Substance: INDOMETHACIN
     Indication: RHEUMATOID ARTHRITIS
     Dosage: UNK
     Route: 065
  9. APO-LEFLUNOMIDE [Suspect]
     Active Substance: LEFLUNOMIDE
     Indication: RHEUMATOID ARTHRITIS
     Dosage: 20 MILLIGRAM, QD
     Route: 048
  10. SIMPONI [Suspect]
     Active Substance: GOLIMUMAB
     Dosage: UNK
     Route: 058
  11. INDOCID [Suspect]
     Active Substance: INDOMETHACIN
     Indication: RHEUMATOID ARTHRITIS
     Dosage: UNK
  12. APO-PREDNISONE [Suspect]
     Active Substance: PREDNISONE
     Dosage: 25 MILLIGRAM, QD
     Route: 048
  13. PLAQUENIL [Suspect]
     Active Substance: HYDROXYCHLOROQUINE SULFATE
     Indication: RHEUMATOID ARTHRITIS
     Dosage: 400 MG, 1X/DAY, FOR ONE YEAR
     Route: 065
  14. INDOMETACIN [Suspect]
     Active Substance: INDOMETHACIN
     Indication: RHEUMATOID ARTHRITIS
     Dosage: UNK
     Route: 065
  15. METHOTREXATE SODIUM. [Suspect]
     Active Substance: METHOTREXATE SODIUM
     Indication: RHEUMATOID ARTHRITIS
     Dosage: LOWER DOSES INITIALLY + INCREASED OVER THE YRS AROUND 1997
     Dates: start: 1997
  16. METHOTREXATE SODIUM. [Suspect]
     Active Substance: METHOTREXATE SODIUM
     Dosage: 25 MILLIGRAM, QWK
     Route: 058
  17. LEFLUNOMIDE. [Suspect]
     Active Substance: LEFLUNOMIDE
     Indication: RHEUMATOID ARTHRITIS
     Dosage: 20 MG, DAILY (FOR 1 YEAR)
     Route: 065
  18. RITUXAN [Suspect]
     Active Substance: RITUXIMAB
     Indication: RHEUMATOID ARTHRITIS
     Dosage: UNK
     Route: 042
  19. GOLD (198 AU) COLLOIDAL [Suspect]
     Active Substance: GOLD AU-198
     Dosage: UNK
     Route: 065
  20. APO-PREDNISONE [Suspect]
     Active Substance: PREDNISONE
     Indication: RHEUMATOID ARTHRITIS
     Dosage: 50 MILLIGRAM, UNK
     Route: 065
  21. HYDROXYCHLOROQUINE [Suspect]
     Active Substance: HYDROXYCHLOROQUINE
     Dosage: UNK
     Route: 065
  22. FOLIC ACID AVENTIS [Concomitant]
     Active Substance: FOLIC ACID
     Indication: RHEUMATOID ARTHRITIS
     Dosage: UNK, WEEKLY
     Route: 048
  23. METHOTREXATE SODIUM. [Suspect]
     Active Substance: METHOTREXATE SODIUM
     Dosage: 25,UNK, QD
     Route: 058
  24. REMICADE [Suspect]
     Active Substance: INFLIXIMAB
     Indication: RHEUMATOID ARTHRITIS
     Dosage: UNK
     Route: 042
  25. PREDNISONE. [Suspect]
     Active Substance: PREDNISONE
     Dosage: 3 MILLIGRAM, QD
     Route: 048
  26. PREDNISONE. [Suspect]
     Active Substance: PREDNISONE
     Dosage: 50 MILLIGRAM, QWK
     Route: 048
  27. ORENCIA [Suspect]
     Active Substance: ABATACEPT
     Indication: RHEUMATOID ARTHRITIS
     Dosage: UNK
     Route: 042
  28. HYDROXYCHLOROQUINE [Suspect]
     Active Substance: HYDROXYCHLOROQUINE
     Indication: RHEUMATOID ARTHRITIS
     Dosage: 400 MG, 1X/DAY
     Route: 065
  29. ARAVA [Suspect]
     Active Substance: LEFLUNOMIDE
     Indication: RHEUMATOID ARTHRITIS
     Dosage: 20 MILLIGRAM, QD
     Route: 048
  30. HYDROXYCHLOROQUINE SULFATE. [Suspect]
     Active Substance: HYDROXYCHLOROQUINE SULFATE
     Indication: RHEUMATOID ARTHRITIS
     Dosage: 400 MILLIGRAM, QD
     Route: 065
  31. ENBREL [Suspect]
     Active Substance: ETANERCEPT
     Indication: RHEUMATOID ARTHRITIS
     Dosage: UNK
     Route: 058
  32. METHOTREXATE SODIUM. [Suspect]
     Active Substance: METHOTREXATE SODIUM
     Dosage: 25 MILLIGRAM, QWK
     Route: 048
     Dates: start: 1997
  33. METHOTREXATE SODIUM. [Suspect]
     Active Substance: METHOTREXATE SODIUM
     Indication: RHEUMATOID ARTHRITIS
     Dosage: 20 MILLIGRAM, QWK, QWK
     Route: 058
  34. SULFASALAZINE. [Suspect]
     Active Substance: SULFASALAZINE
     Indication: RHEUMATOID ARTHRITIS
     Dosage: 1 G, 2X/DAY: 6 MONTHS
     Route: 048
  35. HUMIRA [Suspect]
     Active Substance: ADALIMUMAB
     Indication: RHEUMATOID ARTHRITIS
     Dosage: UNK
     Route: 058
  36. ACTEMRA [Suspect]
     Active Substance: TOCILIZUMAB
     Indication: RHEUMATOID ARTHRITIS
     Dosage: UNK
     Route: 065
  37. APO-PREDNISONE [Suspect]
     Active Substance: PREDNISONE
     Dosage: 3 MILLIGRAM, QD
     Route: 048
  38. GOLD [Suspect]
     Active Substance: GOLD
     Indication: RHEUMATOID ARTHRITIS
     Dosage: UNK
     Route: 065
  39. CYMBALTA [Concomitant]
     Active Substance: DULOXETINE HYDROCHLORIDE
     Dosage: 30 MG, 1X/DAY (NIGHTLY)
     Route: 048
  40. APO-HYDROXYQUINE [Suspect]
     Active Substance: HYDROXYCHLOROQUINE SULFATE
     Indication: RHEUMATOID ARTHRITIS
     Dosage: 400 MG, 1X/DAY
     Route: 065
  41. CIMZIA [Suspect]
     Active Substance: CERTOLIZUMAB PEGOL
     Dosage: UNK
     Route: 058
  42. XELJANZ [Concomitant]
     Active Substance: TOFACITINIB CITRATE
     Dosage: UNK UNK, BID
     Route: 048

REACTIONS (28)
  - Therapeutic product effect decreased [Not Recovered/Not Resolved]
  - Arthralgia [Not Recovered/Not Resolved]
  - Joint swelling [Not Recovered/Not Resolved]
  - Anti-cyclic citrullinated peptide antibody positive [Not Recovered/Not Resolved]
  - Drug ineffective [Not Recovered/Not Resolved]
  - Nasopharyngitis [Unknown]
  - Stress [Not Recovered/Not Resolved]
  - Infection [Not Recovered/Not Resolved]
  - Pain [Not Recovered/Not Resolved]
  - Ankle fracture [Not Recovered/Not Resolved]
  - Vomiting [Not Recovered/Not Resolved]
  - Neck mass [Not Recovered/Not Resolved]
  - Joint stiffness [Not Recovered/Not Resolved]
  - Decreased appetite [Not Recovered/Not Resolved]
  - Nausea [Not Recovered/Not Resolved]
  - Rheumatoid arthritis [Unknown]
  - Limb deformity [Not Recovered/Not Resolved]
  - Headache [Not Recovered/Not Resolved]
  - Musculoskeletal stiffness [Not Recovered/Not Resolved]
  - Malaise [Not Recovered/Not Resolved]
  - Mood swings [Not Recovered/Not Resolved]
  - Bone density abnormal [Not Recovered/Not Resolved]
  - Asthenia [Not Recovered/Not Resolved]
  - Neck deformity [Not Recovered/Not Resolved]
  - Hypercholesterolaemia [Not Recovered/Not Resolved]
  - Treatment failure [Not Recovered/Not Resolved]
  - Rheumatoid factor positive [Not Recovered/Not Resolved]
  - Therapeutic product effect incomplete [Not Recovered/Not Resolved]

NARRATIVE: CASE EVENT DATE: 20150713
